FAERS Safety Report 4425419-4 (Version None)
Quarter: 2004Q3

REPORT INFORMATION
  Report Type: 
  Country: None (occurrence: None)
  Receive Date: 20040813
  Receipt Date: 20040810
  Transmission Date: 20050211
  Serious: Yes (Death, Life-Threatening)
  Sender: FDA-Public Use
  Company Number: 138067

PATIENT
  Age: 80 Year
  Sex: Male
  Weight: 54.5 kg

DRUGS (6)
  1. AUGMENTIN '125' [Suspect]
     Indication: URINARY TRACT INFECTION
     Dosage: 1000MG TWICE PER DAY
     Route: 048
     Dates: start: 20040130, end: 20040201
  2. CIPROFLOXACIN HCL [Suspect]
     Indication: URINARY TRACT INFECTION
     Dosage: 500MG TWICE PER DAY
     Route: 048
     Dates: start: 20040129, end: 20040201
  3. ENOXAPARIN SODIUM [Suspect]
     Indication: THROMBOSIS PROPHYLAXIS
     Dosage: .4ML PER DAY
     Route: 058
  4. ZYLORIC [Suspect]
     Dosage: 300MG PER DAY
     Route: 048
  5. THALIDOMIDE [Concomitant]
     Indication: CARCINOMA
     Route: 048
  6. RED BLOOD CELLS [Concomitant]
     Indication: HAEMOGLOBIN DECREASED
     Dosage: 1BAG UNKNOWN
     Route: 042
     Dates: start: 20040127, end: 20040202

REACTIONS (20)
  - ABSCESS [None]
  - AORTIC ANEURYSM [None]
  - AORTIC THROMBOSIS [None]
  - ARTERIOSCLEROSIS [None]
  - BENIGN PROSTATIC HYPERPLASIA [None]
  - CIRCULATORY COLLAPSE [None]
  - GASTRITIS EROSIVE [None]
  - GASTROINTESTINAL STROMAL TUMOUR [None]
  - HEPATIC FAILURE [None]
  - HEPATIC INFARCTION [None]
  - HEPATIC NECROSIS [None]
  - HYPOGLYCAEMIA [None]
  - NEPHROLITHIASIS [None]
  - PANNICULITIS [None]
  - PETECHIAE [None]
  - PROSTATE CANCER [None]
  - PULMONARY OEDEMA [None]
  - PYELONEPHRITIS [None]
  - SPLENOMEGALY [None]
  - VOMITING [None]
